FAERS Safety Report 17862134 (Version 1)
Quarter: 2020Q2

REPORT INFORMATION
  Report Type: Report from Study
  Country: PE (occurrence: PE)
  Receive Date: 20200604
  Receipt Date: 20200604
  Transmission Date: 20200714
  Serious: Yes (Other)
  Sender: FDA-Public Use
  Company Number: PE-INCYTE CORPORATION-2018IN008118

PATIENT

DRUGS (3)
  1. JAKAVI [Suspect]
     Active Substance: RUXOLITINIB
     Dosage: 10 MG, QD, (5 MG IN THE MORNING AND 5 MG AT NIGHT)
     Route: 048
     Dates: start: 20191129, end: 20191228
  2. JAKAVI [Suspect]
     Active Substance: RUXOLITINIB
     Indication: PRIMARY MYELOFIBROSIS
     Dosage: 15 MG, QD
     Route: 048
     Dates: start: 20130306
  3. JAKAVI [Suspect]
     Active Substance: RUXOLITINIB
     Dosage: 20 MG, QD
     Route: 048

REACTIONS (6)
  - Pyrexia [Recovering/Resolving]
  - Urinary tract infection [Recovering/Resolving]
  - Infection [Recovering/Resolving]
  - Bronchial disorder [Recovering/Resolving]
  - Renal failure [Unknown]
  - Anaemia [Recovering/Resolving]

NARRATIVE: CASE EVENT DATE: 201807
